FAERS Safety Report 6467665-4 (Version None)
Quarter: 2009Q4

REPORT INFORMATION
  Report Type: 
  Country: None (occurrence: None)
  Receive Date: 20091202
  Receipt Date: 20091125
  Transmission Date: 20100525
  Serious: No
  Sender: FDA-Public Use
  Company Number: US-BAXTER-2009BH011021

PATIENT
  Age: 46 Year
  Sex: Female
  Weight: 89 kg

DRUGS (7)
  1. HEPARIN SODIUM INJECTION [Suspect]
     Indication: PROPHYLAXIS
     Route: 065
     Dates: start: 20070101, end: 20070101
  2. XANAX [Concomitant]
     Indication: ANXIETY
     Route: 048
  3. OXYCONTIN [Concomitant]
     Indication: DRUG USE FOR UNKNOWN INDICATION
     Route: 065
  4. OXYCONTIN [Concomitant]
     Route: 065
  5. OXYCONTIN [Concomitant]
     Route: 065
  6. HORMONES AND RELATED AGENTS [Concomitant]
     Indication: DRUG USE FOR UNKNOWN INDICATION
     Route: 065
  7. NITROGLYCERIN [Concomitant]
     Indication: CHEST PAIN
     Route: 065

REACTIONS (1)
  - ADVERSE EVENT [None]
